FAERS Safety Report 7967149-8 (Version None)
Quarter: 2011Q4

REPORT INFORMATION
  Report Type: 
  Country: None (occurrence: None)
  Receive Date: 20111208
  Receipt Date: 20111208
  Transmission Date: 20120403
  Serious: Yes (Hospitalization)
  Sender: FDA-Public Use
  Company Number: None

PATIENT
  Sex: Male

DRUGS (1)
  1. URSODIOL [Suspect]
     Dosage: 300 MG BID PO
     Route: 048
     Dates: start: 20111130, end: 20111202

REACTIONS (2)
  - NAUSEA [None]
  - VOMITING [None]
